FAERS Safety Report 16734103 (Version 1)
Quarter: 2019Q3

REPORT INFORMATION
  Report Type: Spontaneous
  Country: US (occurrence: US)
  Receive Date: 20190823
  Receipt Date: 20190823
  Transmission Date: 20191005
  Serious: No
  Sender: FDA-Public Use
  Company Number: US-ALLERGAN-1907613US

PATIENT
  Age: 77 Year
  Sex: Female
  Weight: 64.41 kg

DRUGS (3)
  1. XANAX [Suspect]
     Active Substance: ALPRAZOLAM
     Indication: ANXIETY
     Dosage: 0.5 MG, QPM  (TITRATION)
     Route: 048
     Dates: start: 20180731
  2. XANAX [Suspect]
     Active Substance: ALPRAZOLAM
     Dosage: 0.5 MG, QPM  (1/2 TABLET AT NIGHT)
     Route: 048
     Dates: start: 2012, end: 20180725
  3. CELEXA [Suspect]
     Active Substance: CITALOPRAM HYDROBROMIDE
     Indication: DEPRESSION
     Dosage: 20 MG, QD
     Route: 048

REACTIONS (10)
  - Hypoaesthesia [Not Recovered/Not Resolved]
  - Drug titration error [Unknown]
  - Nausea [Unknown]
  - Diarrhoea [Unknown]
  - Dementia [Not Recovered/Not Resolved]
  - Formication [Unknown]
  - Insomnia [Unknown]
  - Carpal tunnel syndrome [Not Recovered/Not Resolved]
  - Withdrawal syndrome [Unknown]
  - Mental impairment [Unknown]

NARRATIVE: CASE EVENT DATE: 20170712
